FAERS Safety Report 6938305-2 (Version None)
Quarter: 2010Q3

REPORT INFORMATION
  Report Type: 
  Country: None (occurrence: None)
  Receive Date: 20100824
  Receipt Date: 20100816
  Transmission Date: 20110219
  Serious: Yes (Other)
  Sender: FDA-Public Use
  Company Number: GB-PFIZER INC-2010099523

PATIENT
  Age: 31 Year
  Sex: Male

DRUGS (1)
  1. CHAMPIX [Suspect]
     Indication: SMOKING CESSATION THERAPY
     Dosage: 0.5 MG, UNK

REACTIONS (5)
  - DIZZINESS [None]
  - DYSURIA [None]
  - LACRIMATION INCREASED [None]
  - RENAL PAIN [None]
  - SOMNOLENCE [None]
